FAERS Safety Report 15930106 (Version 1)
Quarter: 2019Q1

REPORT INFORMATION
  Report Type: Spontaneous
  Country: CA (occurrence: CA)
  Receive Date: 20190206
  Receipt Date: 20190206
  Transmission Date: 20190417
  Serious: Yes (Hospitalization, Other)
  Sender: FDA-Public Use
  Company Number: CA-B.I. PHARMACEUTICALS,INC./RIDGEFIELD-2019-BI-004578

PATIENT
  Age: 64 Year
  Sex: Female

DRUGS (10)
  1. ALVESCO [Suspect]
     Active Substance: CICLESONIDE
     Indication: PRODUCT USED FOR UNKNOWN INDICATION
     Dosage: DOSAGE FORM: AEROSOL, METERED DOSE
     Route: 065
  2. MEPOLIZUMAB [Suspect]
     Active Substance: MEPOLIZUMAB
     Indication: PRODUCT USED FOR UNKNOWN INDICATION
     Route: 042
  3. ATROVENT [Suspect]
     Active Substance: IPRATROPIUM BROMIDE
     Indication: PRODUCT USED FOR UNKNOWN INDICATION
     Route: 065
  4. ADVAIR HFA [Suspect]
     Active Substance: FLUTICASONE PROPIONATE\SALMETEROL XINAFOATE
     Indication: PRODUCT USED FOR UNKNOWN INDICATION
     Route: 065
  5. MEPOLIZUMAB [Suspect]
     Active Substance: MEPOLIZUMAB
     Route: 042
  6. VENTOLIN [Suspect]
     Active Substance: ALBUTEROL SULFATE
     Indication: PRODUCT USED FOR UNKNOWN INDICATION
     Route: 065
  7. MEPOLIZUMAB [Suspect]
     Active Substance: MEPOLIZUMAB
     Indication: ASTHMA
     Route: 042
  8. MEPOLIZUMAB [Suspect]
     Active Substance: MEPOLIZUMAB
     Route: 042
  9. SINGULAIR [Suspect]
     Active Substance: MONTELUKAST SODIUM
     Indication: PRODUCT USED FOR UNKNOWN INDICATION
     Route: 065
  10. PERINDOPRIL [Concomitant]
     Active Substance: PERINDOPRIL
     Indication: HYPERTENSION
     Route: 065

REACTIONS (14)
  - Menstrual disorder [Not Recovered/Not Resolved]
  - Nasopharyngitis [Not Recovered/Not Resolved]
  - Drug ineffective [Not Recovered/Not Resolved]
  - Anxiety [Not Recovered/Not Resolved]
  - Sinusitis [Not Recovered/Not Resolved]
  - Oropharyngeal pain [Not Recovered/Not Resolved]
  - Asthma [Not Recovered/Not Resolved]
  - Obstructive airways disorder [Not Recovered/Not Resolved]
  - Pharyngitis [Not Recovered/Not Resolved]
  - Cough [Not Recovered/Not Resolved]
  - Hypotension [Not Recovered/Not Resolved]
  - Secretion discharge [Not Recovered/Not Resolved]
  - Pain [Not Recovered/Not Resolved]
  - Upper respiratory tract infection [Not Recovered/Not Resolved]
